FAERS Safety Report 5910354-2 (Version None)
Quarter: 2008Q4

REPORT INFORMATION
  Report Type: 
  Country: None (occurrence: None)
  Receive Date: 20081007
  Receipt Date: 20080213
  Transmission Date: 20090506
  Serious: No
  Sender: FDA-Public Use
  Company Number: US-ASTRAZENECA-2007UW28266

PATIENT
  Age: 828 Month
  Sex: Female
  Weight: 70.3 kg

DRUGS (2)
  1. ARIMIDEX [Suspect]
     Indication: BREAST CANCER
     Route: 048
     Dates: start: 20071101
  2. ZYFLAMEND [Concomitant]
     Indication: SUPPLEMENTATION THERAPY

REACTIONS (4)
  - AMNESIA [None]
  - BONE PAIN [None]
  - HOT FLUSH [None]
  - ILL-DEFINED DISORDER [None]
